FAERS Safety Report 23939203 (Version 1)
Quarter: 2024Q2

REPORT INFORMATION
  Report Type: Spontaneous
  Country: US (occurrence: None)
  Receive Date: 20240604
  Receipt Date: 20240604
  Transmission Date: 20240716
  Serious: No
  Sender: FDA-Public Use
  Company Number: US-ARIS GLOBAL-UCM202402-000193

PATIENT
  Sex: Female

DRUGS (1)
  1. AMITRIPTYLINE HYDROCHLORIDE [Suspect]
     Active Substance: AMITRIPTYLINE HYDROCHLORIDE
     Indication: Fibromyalgia
     Dosage: 1 PILL ON A REGULAR BASIS (TAKING TWO IS RARE)
     Route: 048

REACTIONS (6)
  - Oropharyngeal pain [Not Recovered/Not Resolved]
  - Dysphagia [Not Recovered/Not Resolved]
  - Hypoaesthesia oral [Recovered/Resolved]
  - Pain [Unknown]
  - Tongue exfoliation [Unknown]
  - Product use in unapproved indication [Unknown]
